FAERS Safety Report 6279580-X (Version None)
Quarter: 2009Q3

REPORT INFORMATION
  Report Type: 
  Country: None (occurrence: None)
  Receive Date: 20090723
  Receipt Date: 20090716
  Transmission Date: 20100115
  Serious: Yes (Other)
  Sender: FDA-Public Use
  Company Number: A0797335A

PATIENT
  Age: 11 Year
  Sex: Male

DRUGS (4)
  1. FLOVENT [Suspect]
     Indication: ASTHMA
     Dosage: 2PUFF TWICE PER DAY
     Route: 055
     Dates: start: 20071219, end: 20071226
  2. STEROID [Concomitant]
  3. ALBUTEROL [Concomitant]
  4. FLU SHOT [Concomitant]

REACTIONS (2)
  - APHASIA [None]
  - DYSPHONIA [None]
